FAERS Safety Report 5756974-X (Version None)
Quarter: 2008Q2

REPORT INFORMATION
  Report Type: 
  Country: None (occurrence: None)
  Receive Date: 20080529
  Receipt Date: 20080516
  Transmission Date: 20081010
  Serious: Yes (Hospitalization)
  Sender: FDA-Public Use
  Company Number: 234320J08USA

PATIENT
  Age: 76 Year
  Sex: Female
  Weight: 77.5651 kg

DRUGS (11)
  1. REBIF [Suspect]
     Indication: MULTIPLE SCLEROSIS
     Dosage: 44 MCG, 3 IN 1 WEEKS, SUBCUTANEOUS
     Route: 058
     Dates: start: 20020617, end: 20080101
  2. REBIF [Suspect]
     Indication: MULTIPLE SCLEROSIS
     Dosage: 44 MCG, 3 IN 1 WEEKS, SUBCUTANEOUS
     Route: 058
     Dates: start: 20080101
  3. CYMBALTA [Concomitant]
  4. TYLENOL (COTYLENOL) [Concomitant]
  5. PRIMROSE OIL (OENOTHERA BIENNIS OIL) [Concomitant]
  6. MULTIVITAMIN (MULTIVITAMIN) [Concomitant]
  7. FISH OIL (FISH OIL) [Concomitant]
  8. VITAMIN D WITH CALCIUM (ERGOCALCIFEROL) [Concomitant]
  9. LORAZEPAM [Concomitant]
  10. OXYBUTYNIN CHLORIDE [Concomitant]
  11. LISINOPRIL [Concomitant]

REACTIONS (1)
  - CHOLELITHIASIS [None]
